FAERS Safety Report 7918351 (Version 2)
Quarter: 2012Q4

REPORT INFORMATION
  Report Type: 
  Country: US (occurrence: US)
  Receive Date: 20110428
  Receipt Date: 20120926
  Transmission Date: 20130627
  Serious: No
  Sender: FDA-Public Use
  Company Number: US-BAYER-2011-034350

PATIENT
  Age: 24 Year
  Sex: Female

DRUGS (1)
  1. MIRENA [Suspect]
     Indication: CONTRACEPTION
     Dosage: 20 ?g, CONT
     Route: 015
     Dates: start: 201005

REACTIONS (4)
  - Pregnancy with contraceptive device [None]
  - Device dislocation [None]
  - Urinary tract infection [None]
  - Dyspareunia [None]
